FAERS Safety Report 5645142-8 (Version None)
Quarter: 2008Q1

REPORT INFORMATION
  Report Type: 
  Country: None (occurrence: None)
  Receive Date: 20080229
  Receipt Date: 20080215
  Transmission Date: 20080703
  Serious: Yes (Other)
  Sender: FDA-Public Use
  Company Number: US-BAYER-200713243BCC

PATIENT
  Age: 34 Year
  Sex: Female
  Weight: 77 kg

DRUGS (1)
  1. ALEVE [Suspect]
     Indication: MYALGIA
     Dosage: TOTAL DAILY DOSE: 440 MG  UNIT DOSE: 220 MG
     Route: 048
     Dates: start: 20070929

REACTIONS (3)
  - HYPERSENSITIVITY [None]
  - PRURITUS [None]
  - SWELLING [None]
